FAERS Safety Report 19668721 (Version 2)
Quarter: 2022Q3

REPORT INFORMATION
  Report Type: Spontaneous
  Country: CH (occurrence: CH)
  Receive Date: 20210806
  Receipt Date: 20220916
  Transmission Date: 20221027
  Serious: Yes (Hospitalization, Other)
  Sender: FDA-Public Use
  Company Number: None

PATIENT
  Age: 57 Year
  Sex: Female

DRUGS (22)
  1. IBUPROFEN [Interacting]
     Active Substance: IBUPROFEN
     Indication: Product used for unknown indication
     Dosage: 400 MG 3X/D (MORNING, NOON, EVENING) PO
     Route: 048
     Dates: start: 20210522, end: 20210611
  2. LITHIUM [Interacting]
     Active Substance: LITHIUM
     Indication: Product used for unknown indication
     Dosage: 32.4 MILLIMOL DAILY; 32.4 MMOL 1X/D (EVENING) PO IN RESERVE
     Route: 048
     Dates: end: 20210607
  3. LITHIUM [Interacting]
     Active Substance: LITHIUM
     Dosage: UNIT DOSE ; 16.2 MILLIMOLE, FREQUENCY TIME : 1 DAY
     Route: 048
     Dates: start: 20210620, end: 20210625
  4. LITHIUM [Interacting]
     Active Substance: LITHIUM
     Dosage: UNIT DOSE ; 10.8 MILLIMOLE, FREQUENCY TIME : 15 DAYS
     Route: 048
     Dates: start: 20210625
  5. LITHIUM [Interacting]
     Active Substance: LITHIUM
     Dosage: UNIT DOSE ; 16.2 MILLIMOLE, FREQUENCY TIME : 15 DAYS
     Route: 048
     Dates: start: 20210626
  6. PALIPERIDONE [Concomitant]
     Active Substance: PALIPERIDONE
     Indication: Product used for unknown indication
     Dates: start: 20210610
  7. CALCIUM\CHOLECALCIFEROL [Concomitant]
     Active Substance: CALCIUM\CHOLECALCIFEROL
     Indication: Product used for unknown indication
  8. ESOMEPRAZOLE [Concomitant]
     Active Substance: ESOMEPRAZOLE
     Indication: Product used for unknown indication
  9. DAFALGAN [Concomitant]
     Active Substance: ACETAMINOPHEN
     Indication: Product used for unknown indication
  10. SODIUM PICOSULFATE [Concomitant]
     Active Substance: SODIUM PICOSULFATE
     Indication: Product used for unknown indication
  11. FIG FRUIT OIL\SORBITOL [Concomitant]
     Active Substance: FIG FRUIT OIL\SORBITOL
     Indication: Product used for unknown indication
  12. TROSPIUM [Concomitant]
     Active Substance: TROSPIUM
     Indication: Product used for unknown indication
  13. DAIVOBET [Concomitant]
     Active Substance: BETAMETHASONE DIPROPIONATE\CALCIPOTRIENE
     Indication: Product used for unknown indication
  14. SYMBICORT [Concomitant]
     Active Substance: BUDESONIDE\FORMOTEROL FUMARATE DIHYDRATE
     Indication: Product used for unknown indication
  15. ALBUTEROL SULFATE\IPRATROPIUM BROMIDE [Concomitant]
     Active Substance: ALBUTEROL SULFATE\IPRATROPIUM BROMIDE
     Indication: Product used for unknown indication
  16. FLAGYL [Concomitant]
     Active Substance: METRONIDAZOLE\METRONIDAZOLE HYDROCHLORIDE
     Indication: Product used for unknown indication
     Route: 067
     Dates: start: 20210608, end: 20210617
  17. CODEINE [Concomitant]
     Active Substance: CODEINE
     Indication: Product used for unknown indication
     Dosage: AS NECESSARY , PO IN RESERVE IF PAIN
  18. Temesta [Concomitant]
     Indication: Product used for unknown indication
     Dosage: AS NECESSARY , PO IN RESERVE IF ANXIETY
  19. MOVICOL [Concomitant]
     Active Substance: POLYETHYLENE GLYCOL 3350\POTASSIUM CHLORIDE\SODIUM BICARBONATE\SODIUM CHLORIDE
     Indication: Product used for unknown indication
     Dosage: AS NECESSARY , PO IN RESERVE IF ANXIETY
  20. NICORETTE [Concomitant]
     Active Substance: NICOTINE
     Indication: Product used for unknown indication
     Dosage: AS NECESSARY
  21. FREKA-CLYSS [Concomitant]
     Indication: Product used for unknown indication
     Dosage: AS NECESSARY , RECTAL ON STANDBY IF CONSTIPATION AFTER SUPPLY
  22. ZOLPIDEM [Concomitant]
     Active Substance: ZOLPIDEM TARTRATE
     Indication: Product used for unknown indication
     Dosage: AS NECESSARY ,  PO ON HAND IF INSOMNIA

REACTIONS (6)
  - Overdose [Recovered/Resolved]
  - Mobility decreased [Recovered/Resolved]
  - Somnolence [Recovered/Resolved]
  - Resting tremor [Recovered/Resolved]
  - Drug interaction [Recovered/Resolved]
  - Renal impairment [Recovered/Resolved]

NARRATIVE: CASE EVENT DATE: 20210501
